FAERS Safety Report 16776221 (Version 1)
Quarter: 2019Q3

REPORT INFORMATION
  Report Type: Spontaneous
  Country: US (occurrence: US)
  Receive Date: 20190905
  Receipt Date: 20190905
  Transmission Date: 20191005
  Serious: No
  Sender: FDA-Public Use
  Company Number: US-GLAXOSMITHKLINE-US2019156654

PATIENT
  Sex: Female

DRUGS (2)
  1. ALBUTEROL INHALATION POWDER [Concomitant]
     Active Substance: ALBUTEROL
     Indication: WHEEZING
     Dosage: UNK
     Route: 065
  2. BREO ELLIPTA [Suspect]
     Active Substance: FLUTICASONE FUROATE\VILANTEROL TRIFENATATE
     Indication: ASTHMA
     Dosage: 1 PUFF(S), 1D
     Route: 055

REACTIONS (2)
  - Dysphonia [Not Recovered/Not Resolved]
  - Wrong technique in device usage process [Unknown]
